FAERS Safety Report 8621486-2 (Version None)
Quarter: 2012Q3

REPORT INFORMATION
  Report Type: 
  Country: None (occurrence: None)
  Receive Date: 20120824
  Receipt Date: 20120815
  Transmission Date: 20120928
  Serious: Yes (Other)
  Sender: FDA-Public Use
  Company Number: US-ASTRAZENECA-2012SE57893

PATIENT
  Age: 62 Year
  Sex: Female

DRUGS (27)
  1. ZYPREXA [Concomitant]
     Indication: BIPOLAR DISORDER
  2. VITAMIN B-12 [Concomitant]
     Indication: GASTRIC BYPASS
  3. IMODIUM [Concomitant]
  4. SYNTHROID [Concomitant]
     Indication: HYPOTHYROIDISM
  5. PERCOCET [Concomitant]
     Indication: PAIN
  6. ASCORBIC ACID [Concomitant]
     Indication: GASTRIC BYPASS
  7. HYDROCORTISONE [Concomitant]
     Indication: ADDISON'S DISEASE
  8. DIGOXIN [Concomitant]
     Indication: ATRIAL FLUTTER
  9. MAXALT-MLT [Concomitant]
     Indication: MIGRAINE
  10. CENTRUM [Concomitant]
     Indication: GASTRIC BYPASS
  11. DEPAKOTE [Concomitant]
     Indication: BIPOLAR DISORDER
  12. MORPHINE SULFATE [Concomitant]
     Indication: ARTHRALGIA
  13. BENADRYL [Concomitant]
     Indication: INSOMNIA
  14. METFORMIN HCL [Concomitant]
     Indication: DIABETES MELLITUS
  15. SUDAFED 12 HOUR [Concomitant]
     Indication: NASAL CONGESTION
  16. LASIX [Concomitant]
     Indication: OEDEMA
  17. POTASSIUM CHLORIDE [Concomitant]
  18. SEROQUEL [Suspect]
     Route: 048
  19. LOPRESSOR [Concomitant]
     Indication: ATRIAL FLUTTER
  20. HYDROXYZINE [Concomitant]
     Indication: INSOMNIA
  21. ZANTAC [Concomitant]
     Indication: GASTROOESOPHAGEAL REFLUX DISEASE
  22. COUMADIN [Concomitant]
     Indication: ATRIAL FLUTTER
  23. SYMBICORT [Suspect]
     Route: 055
  24. CYTOMEL [Concomitant]
     Indication: HYPOTHYROIDISM
  25. HYDRALAZINE HCL [Concomitant]
     Indication: PERIPHERAL VASCULAR DISORDER
  26. VITAMIN D [Concomitant]
     Indication: GASTRIC BYPASS
  27. ULTRA STRENGTH BEN GAY CREAM [Concomitant]

REACTIONS (14)
  - ABSCESS [None]
  - HYPOTHYROIDISM [None]
  - BIPOLAR I DISORDER [None]
  - URINARY INCONTINENCE [None]
  - ARTHRITIS [None]
  - INSOMNIA [None]
  - SWOLLEN TONGUE [None]
  - ATRIAL FLUTTER [None]
  - OEDEMA [None]
  - TREMOR [None]
  - TYPE 2 DIABETES MELLITUS [None]
  - MULTIPLE ALLERGIES [None]
  - MIGRAINE [None]
  - LIP SWELLING [None]
